FAERS Safety Report 9449843 (Version 1)
Quarter: 2013Q3

REPORT INFORMATION
  Report Type: Report from Study
  Country: BR (occurrence: BR)
  Receive Date: 20130809
  Receipt Date: 20130809
  Transmission Date: 20140515
  Serious: Yes (Hospitalization)
  Sender: FDA-Public Use
  Company Number: PHHY2013BR085155

PATIENT
  Age: 64 Year
  Sex: Male

DRUGS (10)
  1. MYFORTIC [Suspect]
     Indication: RENAL TRANSPLANT
     Dosage: UNK
  2. MYFORTIC [Suspect]
     Dosage: DOSE REDUCED BY HALF
  3. MYFORTIC [Suspect]
     Dosage: 1440 MG, UNK
  4. SIMULECT [Suspect]
     Indication: RENAL TRANSPLANT
     Dosage: UNK UKN, UNK
  5. SIMULECT [Suspect]
     Dosage: UNK UKN, UNK
  6. TACROLIMUS [Suspect]
     Indication: RENAL TRANSPLANT
     Dosage: UNK UKN, UNK
  7. TACROLIMUS [Suspect]
     Dosage: UNK UKN, UNK
  8. PREDNISONE [Suspect]
     Indication: RENAL TRANSPLANT
     Dosage: 5 MG, DAILY
  9. PREDNISONE [Suspect]
     Dosage: UNK UKN, UNK
  10. EVEROLIMUS [Concomitant]
     Dosage: 3 MG, PER DAY

REACTIONS (6)
  - Nephropathy toxic [Recovering/Resolving]
  - Kidney fibrosis [Recovering/Resolving]
  - Renal tubular atrophy [Recovering/Resolving]
  - Renal impairment [Recovering/Resolving]
  - Herpes zoster [Recovering/Resolving]
  - Cytomegalovirus infection [Recovering/Resolving]
